FAERS Safety Report 8791790 (Version 1)
Quarter: 2012Q4

REPORT INFORMATION
  Report Type: 
  Country: US (occurrence: US)
  Receive Date: 20120918
  Receipt Date: 20120918
  Transmission Date: 20130627
  Serious: Yes (Hospitalization, Other)
  Sender: FDA-Public Use
  Company Number: US-ELI_LILLY_AND_COMPANY-US201209002081

PATIENT
  Sex: Female

DRUGS (3)
  1. CYMBALTA [Suspect]
     Indication: DEPRESSION
     Dosage: 30 mg, qd
  2. CYMBALTA [Suspect]
     Dosage: 60 mg, qd
  3. CYMBALTA [Suspect]
     Dosage: 30 mg, qd

REACTIONS (7)
  - Coma [Unknown]
  - Gastrointestinal disorder [Unknown]
  - Weight increased [Unknown]
  - Weight loss poor [Unknown]
  - Haematoma [Unknown]
  - Fibromyalgia [Unknown]
  - Fatigue [Unknown]
